FAERS Safety Report 4654721-6 (Version None)
Quarter: 2005Q2

REPORT INFORMATION
  Report Type: 
  Country: None (occurrence: None)
  Receive Date: 20050506
  Receipt Date: 20050302
  Transmission Date: 20051028
  Serious: Yes (Death, Hospitalization, Other)
  Sender: FDA-Public Use
  Company Number: 200511669US

PATIENT
  Age: 66 Year
  Sex: Female

DRUGS (13)
  1. LANTUS [Suspect]
     Indication: DIABETES MELLITUS NON-INSULIN-DEPENDENT
     Dosage: DOSE UNIT: UNITS
     Route: 058
     Dates: start: 20050216, end: 20050217
  2. DIGOXIN [Concomitant]
     Dosage: DOSE: UNK
  3. REGULAR INSULIN [Concomitant]
     Dosage: DOSE: SLIDING SCALE
  4. LEVAQUIN [Concomitant]
     Dosage: DOSE: UNK
  5. COUMADIN [Concomitant]
     Dosage: DOSE: UNK
  6. MORPHINE [Concomitant]
     Dosage: DOSE: UNK
  7. GLUCOCORTICOSTEROIDS [Concomitant]
     Dosage: DOSE: UNK
  8. BRONCHODILATORS [Concomitant]
     Indication: BRONCHOSPASM
     Dosage: DOSE: UNK
  9. MUCOLYTICS [Concomitant]
     Dosage: DOSE: UNK
  10. DIURETICS [Concomitant]
     Dosage: DOSE: UNK
  11. IRON SUCROSE [Concomitant]
     Dosage: DOSE: UNK
  12. PROTON PUMP INHIBITOR [Concomitant]
     Dosage: DOSE: UNK
  13. DARBEPOETIN ALPHA [Concomitant]
     Dosage: DOSE: UNK

REACTIONS (11)
  - ASPIRATION [None]
  - BLOOD GLUCOSE INCREASED [None]
  - GASTROINTESTINAL HAEMORRHAGE [None]
  - HAEMORRHAGE [None]
  - HYPERGLYCAEMIA [None]
  - HYPOGLYCAEMIA [None]
  - HYPOXIA [None]
  - INTUBATION [None]
  - IRON DEFICIENCY ANAEMIA [None]
  - RESPIRATORY FAILURE [None]
  - URINE KETONE BODY PRESENT [None]
